FAERS Safety Report 9589121 (Version 1)
Quarter: 2013Q4

REPORT INFORMATION
  Report Type: Spontaneous
  Country: US (occurrence: US)
  Receive Date: 20131003
  Receipt Date: 20131003
  Transmission Date: 20140711
  Serious: No
  Sender: FDA-Public Use
  Company Number: US-AMGEN-USASP2012068474

PATIENT
  Sex: Female

DRUGS (7)
  1. ENBREL [Suspect]
     Indication: PSORIATIC ARTHROPATHY
     Dosage: 50 MG, QWK
     Route: 058
  2. CALCIUM 500+D [Concomitant]
     Dosage: UNK
  3. PREDNISONE [Concomitant]
     Dosage: 1 MG, UNK
  4. FOLIC ACID [Concomitant]
  5. NAPROXEN                           /00256202/ [Concomitant]
     Dosage: 220 MG, UNK
  6. LEVOTHYROXIN [Concomitant]
     Dosage: 25 MUG, UNK
  7. SULFASALAZIN [Concomitant]
     Dosage: 500 MG, UNK

REACTIONS (2)
  - Pain [Unknown]
  - Injection site pain [Unknown]
